FAERS Safety Report 5604913-4 (Version None)
Quarter: 2008Q1

REPORT INFORMATION
  Report Type: 
  Country: None (occurrence: None)
  Receive Date: 20080123
  Receipt Date: 20080115
  Transmission Date: 20080703
  Serious: No
  Sender: FDA-Public Use
  Company Number: 2008-170662-NL

PATIENT
  Age: 32 Year
  Sex: Female

DRUGS (1)
  1. NUVARING [Suspect]
     Dosage: VAGINAL
     Route: 067
     Dates: start: 20070101

REACTIONS (1)
  - PULMONARY EMBOLISM [None]
